FAERS Safety Report 7361051-0 (Version None)
Quarter: 2011Q1

REPORT INFORMATION
  Report Type: 
  Country: None (occurrence: None)
  Receive Date: 20110318
  Receipt Date: 20110309
  Transmission Date: 20110831
  Serious: Yes (Hospitalization)
  Sender: FDA-Public Use
  Company Number: CHPA2011US03923

PATIENT
  Age: 57 Year
  Sex: Female
  Weight: 57.143 kg

DRUGS (6)
  1. PRIVATE LABEL [Suspect]
     Dosage: 14 MG, QD
     Route: 062
     Dates: end: 20110301
  2. PRIVATE LABEL [Suspect]
     Dosage: 14 MG, QD
     Route: 062
     Dates: start: 20110307
  3. TRAZODONE HCL [Concomitant]
     Dosage: 100 MG, QHS
     Route: 048
  4. SEROQUEL [Concomitant]
     Dosage: 25 MG, QD
     Route: 048
  5. HYDROXYZINE PAMOATE [Concomitant]
     Dosage: 25 MG, UNK
     Route: 048
  6. PRIVATE LABEL [Suspect]
     Indication: SMOKING CESSATION THERAPY
     Dosage: 21 MG, QD
     Route: 062
     Dates: end: 20110101

REACTIONS (5)
  - CEREBROVASCULAR ACCIDENT [None]
  - GAIT DISTURBANCE [None]
  - WEIGHT DECREASED [None]
  - DRUG EFFECT INCREASED [None]
  - SOMNOLENCE [None]
